FAERS Safety Report 19459321 (Version 3)
Quarter: 2021Q4

REPORT INFORMATION
  Report Type: Spontaneous
  Country: FR (occurrence: FR)
  Receive Date: 20210624
  Receipt Date: 20211001
  Transmission Date: 20220303
  Serious: Yes (Other)
  Sender: FDA-Public Use
  Company Number: FR-ABBVIE-21K-056-3959980-00

PATIENT
  Age: 78 Year
  Sex: Female
  Weight: 70 kg

DRUGS (9)
  1. DEPAKOTE [Suspect]
     Active Substance: DIVALPROEX SODIUM
     Indication: Personality disorder
     Route: 048
     Dates: start: 201009, end: 202012
  2. DEPAKOTE [Suspect]
     Active Substance: DIVALPROEX SODIUM
     Route: 048
     Dates: start: 202012, end: 202012
  3. DEPAKOTE [Suspect]
     Active Substance: DIVALPROEX SODIUM
     Route: 048
     Dates: start: 20201125
  4. PERINDOPRIL [Concomitant]
     Active Substance: PERINDOPRIL
     Indication: Product used for unknown indication
  5. LEVOTHYROXINE SODIUM\LIOTHYRONINE SODIUM [Concomitant]
     Active Substance: LEVOTHYROXINE SODIUM\LIOTHYRONINE SODIUM
     Indication: Product used for unknown indication
  6. LANSOPRAZOLE [Concomitant]
     Active Substance: LANSOPRAZOLE
     Indication: Product used for unknown indication
  7. SIMVASTATIN [Concomitant]
     Active Substance: SIMVASTATIN
     Indication: Product used for unknown indication
  8. LEVOTHYROXINE [Concomitant]
     Active Substance: LEVOTHYROXINE
     Indication: Product used for unknown indication
  9. INFLUENZA VIRUS VACCINE [Concomitant]
     Active Substance: INFLUENZA VIRUS VACCINE
     Indication: Product used for unknown indication

REACTIONS (25)
  - Azotaemia [Recovered/Resolved]
  - Diabetes mellitus [Recovered/Resolved]
  - Suicidal ideation [Recovered/Resolved]
  - Inflammation [Unknown]
  - Flank pain [Unknown]
  - Hypophagia [Recovering/Resolving]
  - Leukocytosis [Unknown]
  - Malignant melanoma [Not Recovered/Not Resolved]
  - Seizure [Recovered/Resolved]
  - Pyrexia [Unknown]
  - Abdominal pain [Recovered/Resolved]
  - Hallucination [Recovered/Resolved]
  - Thyroiditis [Not Recovered/Not Resolved]
  - Memory impairment [Recovered/Resolved]
  - Middle insomnia [Recovering/Resolving]
  - Abdominal pain [Recovering/Resolving]
  - Malaise [Recovered/Resolved]
  - Diarrhoea [Recovered/Resolved]
  - Vomiting [Recovered/Resolved]
  - Weight decreased [Recovering/Resolving]
  - Product availability issue [Unknown]
  - Withdrawal syndrome [Unknown]
  - Screaming [Unknown]
  - Middle insomnia [Recovering/Resolving]
  - Food refusal [Recovering/Resolving]

NARRATIVE: CASE EVENT DATE: 20201113
